FAERS Safety Report 9418155 (Version 1)
Quarter: 2013Q3

REPORT INFORMATION
  Report Type: Spontaneous
  Country: AU (occurrence: AU)
  Receive Date: 20130724
  Receipt Date: 20130724
  Transmission Date: 20140515
  Serious: Yes (Life-Threatening)
  Sender: FDA-Public Use
  Company Number: AU-BAXTER-2013BAX028178

PATIENT
  Age: 63 Year
  Sex: Male

DRUGS (2)
  1. BAXTER 5% GLUCOSE 500ML INJECTION BP BOTTLE AHA0063 [Suspect]
     Indication: PRODUCT USED FOR UNKNOWN INDICATION
     Route: 042
  2. OXALIPLATIN [Suspect]
     Indication: PRODUCT USED FOR UNKNOWN INDICATION
     Dosage: 103MG/20.6ML
     Route: 042

REACTIONS (2)
  - Facial spasm [Unknown]
  - Infusion related reaction [Unknown]
